FAERS Safety Report 5985917-9 (Version None)
Quarter: 2008Q4

REPORT INFORMATION
  Report Type: 
  Country: None (occurrence: None)
  Receive Date: 20081201
  Receipt Date: 20081201
  Transmission Date: 20090506
  Serious: Yes (Disabling)
  Sender: FDA-Public Use
  Company Number: None

PATIENT
  Sex: Female
  Weight: 58.9676 kg

DRUGS (2)
  1. PHOSPHATIDYLCHOLINE (50MG) COMBINED WITH SODIUM DEOXYCHOLATE (42MG) (C [Suspect]
     Indication: LIPOSUCTION
     Dosage: SEE IMAGE
     Dates: start: 20070206
  2. PHOSPHATIDYLCHOLINE (50MG) COMBINED WITH SODIUM DEOXYCHOLATE (42MG) (C [Suspect]
     Indication: LIPOSUCTION
     Dosage: SEE IMAGE
     Dates: start: 20070516

REACTIONS (1)
  - MYASTHENIA GRAVIS [None]
